FAERS Safety Report 19098078 (Version 1)
Quarter: 2021Q2

REPORT INFORMATION
  Report Type: Spontaneous
  Country: US (occurrence: US)
  Receive Date: 20210406
  Receipt Date: 20210406
  Transmission Date: 20210717
  Serious: No
  Sender: FDA-Public Use
  Company Number: US-GLAXOSMITHKLINE-US2021071633

PATIENT
  Sex: Female

DRUGS (1)
  1. BREO ELLIPTA [Suspect]
     Active Substance: FLUTICASONE FUROATE\VILANTEROL TRIFENATATE
     Indication: HYPERSENSITIVITY PNEUMONITIS
     Dosage: 1 PUFF(S), 1D, 200/25
     Route: 055
     Dates: start: 2020

REACTIONS (2)
  - Cough [Not Recovered/Not Resolved]
  - Product use issue [Unknown]
